FAERS Safety Report 6050461-X (Version None)
Quarter: 2009Q1

REPORT INFORMATION
  Report Type: 
  Country: None (occurrence: None)
  Receive Date: 20090126
  Receipt Date: 20090113
  Transmission Date: 20090719
  Serious: Yes (Other)
  Sender: FDA-Public Use
  Company Number: PHEH2009US01015

PATIENT
  Sex: Female

DRUGS (2)
  1. ZADITOR [Suspect]
     Indication: CATARACT
  2. TOBRADEX [Suspect]
     Indication: CATARACT

REACTIONS (1)
  - CATARACT OPERATION [None]
